FAERS Safety Report 5413864-X (Version None)
Quarter: 2007Q3

REPORT INFORMATION
  Report Type: 
  Country: None (occurrence: None)
  Receive Date: 20070814
  Receipt Date: 20070605
  Transmission Date: 20080115
  Serious: No
  Sender: FDA-Public Use
  Company Number: US-BRISTOL-MYERS SQUIBB COMPANY-13805122

PATIENT
  Age: 42 Year
  Sex: Female

DRUGS (5)
  1. ATAZANAVIR SULFATE [Suspect]
     Indication: HIV INFECTION
     Route: 048
     Dates: start: 20050201
  2. RITONAVIR [Concomitant]
  3. ZIDOVUDINE [Concomitant]
  4. DIDANOSINE [Concomitant]
  5. HYDROCHLOROTHIAZIDE [Concomitant]

REACTIONS (1)
  - NEPHROLITHIASIS [None]
